FAERS Safety Report 7270819-0 (Version None)
Quarter: 2011Q1

REPORT INFORMATION
  Report Type: 
  Country: None (occurrence: None)
  Receive Date: 20110125
  Receipt Date: 20110125
  Transmission Date: 20110831
  Serious: Yes (Other)
  Sender: FDA-Public Use
  Company Number: None

PATIENT
  Age: 55 Year
  Sex: Female
  Weight: 68.0396 kg

DRUGS (2)
  1. TAXOTERE [Suspect]
     Indication: BREAST CANCER
     Dosage: 115MG OVER 1HR FOR 1 DAY IV (1 HOUR INFUSION)
     Route: 042
     Dates: start: 20110110, end: 20110110
  2. TAXOTERE [Suspect]

REACTIONS (5)
  - LIP SWELLING [None]
  - SWELLING FACE [None]
  - PRODUCT QUALITY ISSUE [None]
  - OEDEMA PERIPHERAL [None]
  - URTICARIA [None]
